FAERS Safety Report 5110892-9 (Version None)
Quarter: 2006Q3

REPORT INFORMATION
  Report Type: 
  Country: None (occurrence: None)
  Receive Date: 20060919
  Receipt Date: 20060904
  Transmission Date: 20061208
  Serious: Yes (Death, Other)
  Sender: FDA-Public Use
  Company Number: SPV1-2006-00607

PATIENT

DRUGS (1)
  1. AGRYLIN [Suspect]
     Indication: THROMBOCYTHAEMIA

REACTIONS (12)
  - ANAEMIA [None]
  - ASTHENIA [None]
  - CEREBROVASCULAR ACCIDENT [None]
  - CHRONIC MYELOID LEUKAEMIA [None]
  - DIZZINESS [None]
  - GASTROINTESTINAL DISORDER [None]
  - HEADACHE [None]
  - HODGKIN'S DISEASE [None]
  - MYOCARDIAL INFARCTION [None]
  - NON-HODGKIN'S LYMPHOMA [None]
  - PALPITATIONS [None]
  - PULMONARY EMBOLISM [None]
